FAERS Safety Report 5615945-4 (Version None)
Quarter: 2008Q1

REPORT INFORMATION
  Report Type: 
  Country: None (occurrence: None)
  Receive Date: 20080206
  Receipt Date: 20080125
  Transmission Date: 20080703
  Serious: Yes (Other)
  Sender: FDA-Public Use
  Company Number: GB-PFIZER INC-2008008576

PATIENT
  Age: 29 Year
  Sex: Male
  Weight: 75 kg

DRUGS (2)
  1. CHANTIX [Suspect]
     Indication: SMOKING CESSATION THERAPY
     Route: 048
     Dates: start: 20080111, end: 20080113
  2. NOVOLOG MIX 70/30 [Concomitant]
     Indication: DIABETES MELLITUS
     Route: 058

REACTIONS (5)
  - BODY TEMPERATURE INCREASED [None]
  - EYE SWELLING [None]
  - NAUSEA [None]
  - OCULAR HYPERAEMIA [None]
  - TINNITUS [None]
